FAERS Safety Report 14551464 (Version 3)
Quarter: 2018Q2

REPORT INFORMATION
  Report Type: Report from Study
  Country: TR (occurrence: TR)
  Receive Date: 20180220
  Receipt Date: 20180413
  Transmission Date: 20180711
  Serious: Yes (Other)
  Sender: FDA-Public Use
  Company Number: TR-ASTRAZENECA-2018SE20463

PATIENT
  Age: 16181 Day
  Sex: Female
  Weight: 82 kg

DRUGS (4)
  1. OLAPARIB. [Suspect]
     Active Substance: OLAPARIB
     Indication: OVARIAN CANCER
     Route: 048
     Dates: start: 20180131
  2. OLAPARIB. [Suspect]
     Active Substance: OLAPARIB
     Indication: BRCA2 GENE MUTATION
     Route: 048
     Dates: start: 20180131
  3. OLAPARIB. [Suspect]
     Active Substance: OLAPARIB
     Indication: OVARIAN CANCER
     Route: 048
     Dates: start: 20171220, end: 20180123
  4. OLAPARIB. [Suspect]
     Active Substance: OLAPARIB
     Indication: BRCA2 GENE MUTATION
     Route: 048
     Dates: start: 20171220, end: 20180123

REACTIONS (2)
  - Metastases to bone [Unknown]
  - Haematotoxicity [Recovered/Resolved]

NARRATIVE: CASE EVENT DATE: 20180123
